FAERS Safety Report 8309684 (Version 2)
Quarter: 2013Q2

REPORT INFORMATION
  Report Type: Spontaneous
  Country: US (occurrence: None)
  Receive Date: 20111123
  Receipt Date: 20120525
  Transmission Date: 20140414
  Serious: Yes (Hospitalization)
  Sender: FDA-Public Use
  Company Number: 337690

PATIENT
  Age: 50 Year
  Sex: Male
  Weight: 102 kg

DRUGS (6)
  1. VICTOZA [Suspect]
     Indication: TYPE 2 DIABETES MELLITUS
     Route: 058
     Dates: start: 20110915, end: 20111013
  2. IBUPROFEN (IBUPROFEN) [Concomitant]
  3. MULTIVITAMIN /00097801/ (ASCORBIC ACD, CALCIUM PANTOTHENATE, ERGOCALCIFEROL, NICOTINAMIDE, PYRIDOXINE HYDROCHLORIDE, RETINOL, RIBOFLAVIN, THIAMINE HYDROCHLORIDE) [Concomitant]
  4. QUERCETIN (QUERCETIN) [Concomitant]
  5. BROMELAIN (BROMELAINS) [Concomitant]
  6. MAGNESIUM (MAGNESIUM) [Concomitant]

REACTIONS (1)
  - PANCREATITIS ACUTE [None]
